FAERS Safety Report 20447463 (Version 2)
Quarter: 2022Q1

REPORT INFORMATION
  Report Type: Spontaneous
  Country: US (occurrence: None)
  Receive Date: 20220209
  Receipt Date: 20220323
  Transmission Date: 20220424
  Serious: Yes (Hospitalization)
  Sender: FDA-Public Use
  Company Number: US-ROCHE-2953730

PATIENT
  Age: 59 Year
  Sex: Female

DRUGS (1)
  1. GAVRETO [Suspect]
     Active Substance: PRALSETINIB
     Indication: Product used for unknown indication
     Route: 048
     Dates: start: 202105

REACTIONS (2)
  - Stomatitis [Recovering/Resolving]
  - Haemoglobin abnormal [Unknown]

NARRATIVE: CASE EVENT DATE: 20211101
